FAERS Safety Report 20632283 (Version 2)
Quarter: 2022Q3

REPORT INFORMATION
  Report Type: Other
  Country: GB (occurrence: GB)
  Receive Date: 20220324
  Receipt Date: 20220702
  Transmission Date: 20221026
  Serious: Yes (Life-Threatening, Hospitalization, Disabling, Other)
  Sender: FDA-Public Use
  Company Number: GB-MACLEODS PHARMA UK LTD-MAC2022034957

PATIENT

DRUGS (1)
  1. ARIPIPRAZOLE [Suspect]
     Active Substance: ARIPIPRAZOLE
     Indication: Product used for unknown indication
     Dosage: UNK
     Route: 065
     Dates: start: 20201001, end: 20210301

REACTIONS (21)
  - Amnesia [Not Recovered/Not Resolved]
  - Blood cholesterol increased [Unknown]
  - Blood pressure abnormal [Recovering/Resolving]
  - Cardiac flutter [Not Recovered/Not Resolved]
  - Central obesity [Not Recovered/Not Resolved]
  - Cluster headache [Not Recovered/Not Resolved]
  - Dysuria [Recovering/Resolving]
  - Gastrointestinal pain [Recovering/Resolving]
  - Joint swelling [Recovering/Resolving]
  - Petit mal epilepsy [Recovering/Resolving]
  - Oedema peripheral [Not Recovered/Not Resolved]
  - Chronic kidney disease [Not Recovered/Not Resolved]
  - Dyskinesia [Not Recovered/Not Resolved]
  - Vertigo [Not Recovered/Not Resolved]
  - Muscular weakness [Not Recovered/Not Resolved]
  - Muscle spasms [Not Recovered/Not Resolved]
  - Tardive dyskinesia [Not Recovered/Not Resolved]
  - Vision blurred [Not Recovered/Not Resolved]
  - Vomiting [Not Recovered/Not Resolved]
  - Fatigue [Not Recovered/Not Resolved]
  - Medication error [Unknown]

NARRATIVE: CASE EVENT DATE: 20201001
